FAERS Safety Report 16256328 (Version 3)
Quarter: 2019Q2

REPORT INFORMATION
  Report Type: Spontaneous
  Country: JP (occurrence: JP)
  Receive Date: 20190430
  Receipt Date: 20190611
  Transmission Date: 20190711
  Serious: Yes (Hospitalization, Other)
  Sender: FDA-Public Use
  Company Number: JP-PFIZER INC-2019140711

PATIENT
  Age: 77 Year
  Sex: Female
  Weight: 47 kg

DRUGS (5)
  1. XELJANZ [Suspect]
     Active Substance: TOFACITINIB CITRATE
     Indication: RHEUMATOID ARTHRITIS
     Dosage: 5 MG, 1X/DAY
     Route: 048
     Dates: start: 20190219, end: 20190324
  2. EDIROL [Concomitant]
     Active Substance: ELDECALCITOL
     Indication: OSTEOPOROSIS
     Dosage: 0.75 MG, 1X/DAY
     Route: 048
     Dates: start: 20180731
  3. BENAMBAX [Concomitant]
     Active Substance: PENTAMIDINE
     Indication: ANTIFUNGAL PROPHYLAXIS
     Dosage: 300 MG, MONTHLY
     Dates: start: 20190115
  4. FERROMIA [Concomitant]
     Active Substance: SODIUM FERROUS CITRATE
     Indication: IRON DEFICIENCY ANAEMIA
     Dosage: 50 MG, 2X/WEEK
     Route: 048
     Dates: start: 20180904
  5. BACTAR [Concomitant]
     Active Substance: SULFAMERAZINE\TRIMETHOPRIM
     Indication: ANTIFUNGAL PROPHYLAXIS
     Dosage: 1 DF, 2X/WEEK
     Route: 048
     Dates: start: 20150203, end: 20190114

REACTIONS (2)
  - Therapeutic response decreased [Unknown]
  - Tubulointerstitial nephritis [Not Recovered/Not Resolved]

NARRATIVE: CASE EVENT DATE: 20190304
